FAERS Safety Report 20595415 (Version 1)
Quarter: 2022Q1

REPORT INFORMATION
  Report Type: Spontaneous
  Country: US (occurrence: US)
  Receive Date: 20220315
  Receipt Date: 20220315
  Transmission Date: 20220423
  Serious: Yes (Other)
  Sender: FDA-Public Use
  Company Number: US-PFIZER INC-202200204094

PATIENT
  Age: 66 Year
  Sex: Male
  Weight: 80 kg

DRUGS (3)
  1. CAVERJECT [Suspect]
     Active Substance: ALPROSTADIL
     Indication: Erectile dysfunction
     Dosage: 20 UG
  2. CAVERJECT [Suspect]
     Active Substance: ALPROSTADIL
     Dosage: 15 UG
  3. CAVERJECT [Suspect]
     Active Substance: ALPROSTADIL
     Dosage: 10-15 UG

REACTIONS (1)
  - Erection increased [Recovered/Resolved]
